FAERS Safety Report 13649324 (Version 1)
Quarter: 2017Q2

REPORT INFORMATION
  Report Type: Spontaneous
  Country: US (occurrence: US)
  Receive Date: 20170613
  Receipt Date: 20170613
  Transmission Date: 20170830
  Serious: Yes (Other)
  Sender: FDA-Public Use
  Company Number: US-TEVA-776695USA

PATIENT
  Age: 43 Year
  Sex: Male

DRUGS (3)
  1. BENZATROPINE [Interacting]
     Active Substance: BENZTROPINE
     Route: 065
  2. ZIPRASIDONE. [Interacting]
     Active Substance: ZIPRASIDONE
     Route: 065
  3. CLOZAPINE. [Suspect]
     Active Substance: CLOZAPINE
     Indication: MENTAL DISORDER
     Dosage: 400 MILLIGRAM DAILY;
     Route: 065

REACTIONS (5)
  - Drug interaction [Unknown]
  - Dizziness [Unknown]
  - Ileus [Unknown]
  - Toxicity to various agents [Unknown]
  - Hypotension [Unknown]
